FAERS Safety Report 6804455-4 (Version None)
Quarter: 2010Q2

REPORT INFORMATION
  Report Type: 
  Country: None (occurrence: None)
  Receive Date: 20100628
  Receipt Date: 20070321
  Transmission Date: 20101027
  Serious: Yes (Other)
  Sender: FDA-Public Use
  Company Number: US-PFIZER INC-2007022879

PATIENT
  Sex: Female
  Weight: 73.03 kg

DRUGS (4)
  1. CADUET [Suspect]
     Indication: HYPERTENSION
     Route: 048
     Dates: start: 20070201
  2. CADUET [Suspect]
     Indication: BLOOD CHOLESTEROL INCREASED
  3. SYNTHROID [Concomitant]
     Dates: start: 20000101
  4. ATENOLOL [Concomitant]
     Dates: start: 20070201

REACTIONS (4)
  - JOINT SWELLING [None]
  - LOSS OF CONSCIOUSNESS [None]
  - OEDEMA PERIPHERAL [None]
  - SOMNOLENCE [None]
